FAERS Safety Report 9189673 (Version 2)
Quarter: 2013Q3

REPORT INFORMATION
  Report Type: Spontaneous
  Country: US (occurrence: US)
  Receive Date: 20130326
  Receipt Date: 20130722
  Transmission Date: 20140515
  Serious: Yes (Hospitalization)
  Sender: FDA-Public Use
  Company Number: US-BAYER-2013-037693

PATIENT
  Age: 35 Year
  Sex: Female
  Weight: 113 kg

DRUGS (6)
  1. YAZ [Suspect]
     Dosage: UNK
     Dates: start: 200612, end: 200708
  2. SOLU-MEDROL [Concomitant]
     Dosage: UNK
     Route: 042
     Dates: start: 20070808
  3. KEPPRA [Concomitant]
     Dosage: UNK
     Dates: start: 20070802
  4. NEURONTIN [Concomitant]
     Dosage: UNK
     Dates: start: 20070824
  5. HYDROCODONE W/APAP [Concomitant]
     Dosage: 7.5-750
  6. BETASERON [Concomitant]

REACTIONS (3)
  - Pulmonary embolism [None]
  - Pain [None]
  - Pain [None]
